FAERS Safety Report 8812561 (Version 1)
Quarter: 2012Q4

REPORT INFORMATION
  Report Type: 
  Country: LK (occurrence: LK)
  Receive Date: 20120927
  Receipt Date: 20120927
  Transmission Date: 20130627
  Serious: Yes (Death, Other)
  Sender: FDA-Public Use
  Company Number: PHHO2003LK16947

PATIENT
  Sex: Female

DRUGS (1)
  1. GLIVEC [Suspect]
     Indication: BLAST CRISIS IN MYELOGENOUS LEUKAEMIA
     Dosage: 600 mg, QD
     Dates: start: 20030604

REACTIONS (4)
  - Death [Fatal]
  - Thrombocytopenia [Unknown]
  - White blood cell count decreased [Unknown]
  - Fibrosis [Unknown]
